FAERS Safety Report 21600826 (Version 1)
Quarter: 2022Q4

REPORT INFORMATION
  Report Type: Spontaneous
  Country: GB (occurrence: None)
  Receive Date: 20221116
  Receipt Date: 20221116
  Transmission Date: 20230113
  Serious: Yes (Other)
  Sender: FDA-Public Use
  Company Number: US-ROCHE-3211739

PATIENT
  Sex: Female

DRUGS (3)
  1. XELODA [Suspect]
     Active Substance: CAPECITABINE
     Indication: Product used for unknown indication
     Route: 048
  2. TUCATINIB [Concomitant]
     Active Substance: TUCATINIB
  3. TUKYSA [Concomitant]
     Active Substance: TUCATINIB

REACTIONS (1)
  - Renal impairment [Unknown]
